FAERS Safety Report 14658793 (Version 2)
Quarter: 2018Q1

REPORT INFORMATION
  Report Type: Spontaneous
  Country: US (occurrence: US)
  Receive Date: 20180320
  Receipt Date: 20180331
  Transmission Date: 20180509
  Serious: Yes (Other)
  Sender: FDA-Public Use
  Company Number: US-TEVA-2018-US-871057

PATIENT
  Age: 25 Year
  Sex: Male

DRUGS (1)
  1. CLOZAPINE. [Suspect]
     Active Substance: CLOZAPINE

REACTIONS (7)
  - Bladder disorder [Unknown]
  - Appendicitis [Unknown]
  - Hallucination [Unknown]
  - Urinary retention [Unknown]
  - Constipation [Unknown]
  - Toxicity to various agents [Unknown]
  - Tremor [Unknown]
